FAERS Safety Report 9369870 (Version 1)
Quarter: 2013Q2

REPORT INFORMATION
  Report Type: Report from Study
  Country: GR (occurrence: GR)
  Receive Date: 20130626
  Receipt Date: 20130626
  Transmission Date: 20140414
  Serious: Yes (Death, Life-Threatening, Hospitalization)
  Sender: FDA-Public Use
  Company Number: GR-ABBOTT-13P-066-1039864-00

PATIENT
  Age: 80 Year
  Sex: Male
  Weight: 80 kg

DRUGS (6)
  1. HUMIRA [Suspect]
     Indication: RHEUMATOID ARTHRITIS
     Route: 058
     Dates: start: 20111004, end: 20121113
  2. PREDNISOLONE [Concomitant]
     Indication: RHEUMATOID ARTHRITIS
     Dosage: 10 MG DAILY
     Route: 048
     Dates: start: 20110825, end: 201211
  3. CALCIUM CARBONATE + COLECALCIFEROL (IDEOS) [Concomitant]
     Indication: OSTEOPOROSIS PROPHYLAXIS
     Dosage: 500MG+400IU/ DAY
     Route: 048
     Dates: start: 20110825, end: 201211
  4. ALENDRONIC ACID [Concomitant]
     Indication: OSTEOPOROSIS PROPHYLAXIS
     Route: 048
     Dates: start: 20110825, end: 201211
  5. ZOLANDIL [Concomitant]
     Indication: PROPHYLAXIS
     Dosage: 40 MG DAILY
     Route: 048
     Dates: start: 20110825, end: 201211
  6. ZOLANDIL [Concomitant]
     Indication: GASTRIC DISORDER

REACTIONS (1)
  - Gastric cancer [Fatal]
